FAERS Safety Report 21088412 (Version 1)
Quarter: 2022Q3

REPORT INFORMATION
  Report Type: Spontaneous
  Country: US (occurrence: None)
  Receive Date: 20220715
  Receipt Date: 20220715
  Transmission Date: 20221027
  Serious: Yes (Hospitalization)
  Sender: FDA-Public Use
  Company Number: None

PATIENT
  Sex: Female

DRUGS (2)
  1. ORENCIA [Suspect]
     Active Substance: ABATACEPT
     Indication: Rheumatoid arthritis
     Dosage: INJECT Y SYRINGE UNDER THE SKIN (SUBCUTANEOUS INJECTION) ONCE A WEEK?
     Route: 058
     Dates: start: 20210605
  2. ORENCIA [Suspect]
     Active Substance: ABATACEPT
     Dosage: OTHER QUANTITY : 1 SYRINGE;?FREQUENCY : WEEKLY;?
     Route: 058

REACTIONS (6)
  - Renal transplant [None]
  - Condition aggravated [None]
  - Pain [None]
  - Loss of personal independence in daily activities [None]
  - Pyrexia [None]
  - Fatigue [None]
